FAERS Safety Report 4533309-1 (Version None)
Quarter: 2004Q4

REPORT INFORMATION
  Report Type: 
  Country: None (occurrence: None)
  Receive Date: 20041206
  Receipt Date: 20040913
  Transmission Date: 20050328
  Serious: No
  Sender: FDA-Public Use
  Company Number: USA040978067

PATIENT
  Age: 74 Year
  Sex: Female
  Weight: 95 kg

DRUGS (5)
  1. CYMBALTA [Suspect]
     Indication: ANXIETY
     Dosage: 60 MG/ 1 DAY
     Dates: start: 20040911
  2. ATENOLOL [Concomitant]
  3. TRIAMTERENE AND HYDROCHLOROTHIAZIDE [Concomitant]
  4. XANAX (ALPRAZOLAM DUM) [Concomitant]
  5. MULTIVITAMIN [Concomitant]

REACTIONS (6)
  - ABNORMAL DREAMS [None]
  - DIARRHOEA [None]
  - DRY MOUTH [None]
  - HEADACHE [None]
  - INSOMNIA [None]
  - SOMNOLENCE [None]
